FAERS Safety Report 11471722 (Version 1)
Quarter: 2015Q3

REPORT INFORMATION
  Report Type: Spontaneous
  Country: JP (occurrence: JP)
  Receive Date: 20150908
  Receipt Date: 20150908
  Transmission Date: 20151125
  Serious: Yes (Other)
  Sender: FDA-Public Use
  Company Number: PHJP2015JP013230

PATIENT
  Age: 86 Year
  Sex: Female

DRUGS (1)
  1. TEGRETOL [Suspect]
     Active Substance: CARBAMAZEPINE
     Indication: PRODUCT USED FOR UNKNOWN INDICATION
     Dosage: 1 DF, TID
     Route: 048
     Dates: start: 20150727, end: 20150728

REACTIONS (3)
  - Memory impairment [Unknown]
  - Somnolence [Unknown]
  - Cognitive disorder [Recovered/Resolved]

NARRATIVE: CASE EVENT DATE: 20150728
